FAERS Safety Report 20418837 (Version 1)
Quarter: 2022Q1

REPORT INFORMATION
  Report Type: Report from Study
  Country: IT (occurrence: IT)
  Receive Date: 20220202
  Receipt Date: 20220202
  Transmission Date: 20220424
  Serious: Yes (Other)
  Sender: FDA-Public Use
  Company Number: None

PATIENT
  Age: 49 Year
  Sex: Female
  Weight: 60 kg

DRUGS (8)
  1. TECFIDERA [Suspect]
     Active Substance: DIMETHYL FUMARATE
     Indication: Relapsing-remitting multiple sclerosis
     Dosage: MAINTENANCE DOSE.
     Route: 048
     Dates: start: 20180201, end: 20211222
  2. DEPALGOS 5 MG + 325 MG COMPRESSE RIVESTITE CON FILM [Concomitant]
     Indication: Product used for unknown indication
     Dosage: DEPALGOS 5 MG + 325 MG TABLETS COATED WITH FILM
     Route: 065
  3. GABAPENTIN SANDOZ GMBH [Concomitant]
     Indication: Product used for unknown indication
     Route: 065
  4. COTAREG 320 MG/25 MG COMPRESSE RIVESTITE CON FILM [Concomitant]
     Dosage: COTAREG 320 MG/25 MG TABLETS COATED WITH FILM
     Route: 065
  5. BUPRENORPHINE [Concomitant]
     Active Substance: BUPRENORPHINE
     Indication: Product used for unknown indication
     Route: 065
  6. FENTANIL ZENTIVA 25 MICROGRAMMI/H CEROTTO TRANSDERMICO [Concomitant]
     Indication: Product used for unknown indication
     Dosage: FENTANYL ZENTIVA 25 MICROGRAMS / H TRANSDERMAL PATCH
     Route: 065
  7. LASIX [Concomitant]
     Active Substance: FUROSEMIDE
     Indication: Product used for unknown indication
     Dosage: LASIX 25 MG TABLETS
     Route: 065
  8. BETAMETHASONE SODIUM PHOSPHATE [Concomitant]
     Active Substance: BETAMETHASONE SODIUM PHOSPHATE
     Indication: Product used for unknown indication
     Dosage: BENTELAN 4 MG / 2 ML SOLUTION FOR INJECTION
     Route: 065

REACTIONS (1)
  - Breast cancer [Unknown]

NARRATIVE: CASE EVENT DATE: 20210826
